FAERS Safety Report 7396970-2 (Version None)
Quarter: 2011Q1

REPORT INFORMATION
  Report Type: 
  Country: None (occurrence: None)
  Receive Date: 20110331
  Receipt Date: 20110331
  Transmission Date: 20110831
  Serious: Yes (Disabling)
  Sender: FDA-Public Use
  Company Number: None

PATIENT
  Sex: Female
  Weight: 52.1637 kg

DRUGS (2)
  1. ACTONEL [Suspect]
     Dosage: 150 MG ONE EVERY MONTH
  2. BONIVA [Suspect]
     Indication: OSTEOPOROSIS
     Dosage: ONE EVERY MONTH
     Dates: start: 20100901, end: 20110101

REACTIONS (5)
  - BODY HEIGHT DECREASED [None]
  - PAIN IN JAW [None]
  - PAIN IN EXTREMITY [None]
  - ARTHRALGIA [None]
  - DYSPHAGIA [None]
